FAERS Safety Report 4766709-5 (Version None)
Quarter: 2005Q3

REPORT INFORMATION
  Report Type: 
  Country: None (occurrence: None)
  Receive Date: 20050912
  Receipt Date: 20050901
  Transmission Date: 20060218
  Serious: Yes (Other)
  Sender: FDA-Public Use
  Company Number: 001-0981-M0006807

PATIENT
  Age: 72 Year
  Sex: Female
  Weight: 65.318 kg

DRUGS (2)
  1. LIPITOR [Suspect]
     Indication: BLOOD CHOLESTEROL INCREASED
     Dosage: 10 MG (1 IN 1 D), ORAL
     Route: 048
     Dates: start: 19990101
  2. LOSARTAN POTASSIUM (LOSARTAN POTASSIM) [Concomitant]

REACTIONS (14)
  - ABNORMAL SENSATION IN EYE [None]
  - ARTHRITIS [None]
  - ASTHENIA [None]
  - BURSITIS [None]
  - DIFFICULTY IN WALKING [None]
  - DISEASE RECURRENCE [None]
  - EYE PAIN [None]
  - FATIGUE [None]
  - HEPATIC ENZYME INCREASED [None]
  - MUSCULAR WEAKNESS [None]
  - MYALGIA [None]
  - POST PROCEDURAL COMPLICATION [None]
  - PSORIASIS [None]
  - VISION BLURRED [None]
